FAERS Safety Report 9516014 (Version 1)
Quarter: 2013Q3

REPORT INFORMATION
  Report Type: Spontaneous
  Country: FR (occurrence: FR)
  Receive Date: 20130911
  Receipt Date: 20130911
  Transmission Date: 20140515
  Serious: Yes (Hospitalization)
  Sender: FDA-Public Use
  Company Number: FR-JNJFOC-20130901397

PATIENT
  Sex: Female

DRUGS (13)
  1. RISPERDAL [Suspect]
     Indication: PRODUCT USED FOR UNKNOWN INDICATION
     Route: 048
     Dates: end: 20090805
  2. RISPERDAL [Suspect]
     Indication: PRODUCT USED FOR UNKNOWN INDICATION
     Route: 048
     Dates: start: 20090805, end: 20090806
  3. DETENSIEL [Concomitant]
     Route: 065
  4. HEMIGOXINE NATIVELLE [Concomitant]
     Route: 065
  5. EQUANIL [Concomitant]
     Route: 065
  6. CERIS [Concomitant]
     Route: 065
  7. LEVOTHYROX [Concomitant]
     Route: 065
  8. ALDACTONE [Concomitant]
     Route: 065
  9. EUPRESSYL [Concomitant]
     Route: 065
  10. GLUCOPHAGE [Concomitant]
     Route: 065
  11. NOVONORM [Concomitant]
     Route: 065
  12. KARDEGIC [Concomitant]
     Route: 065
  13. UVEDOSE [Concomitant]
     Route: 065

REACTIONS (5)
  - Tachyarrhythmia [Unknown]
  - Confusional state [Unknown]
  - Hypotension [Unknown]
  - Extrapyramidal disorder [Unknown]
  - Parkinsonism [Unknown]
